FAERS Safety Report 6186110-X (Version None)
Quarter: 2009Q2

REPORT INFORMATION
  Report Type: 
  Country: None (occurrence: None)
  Receive Date: 20090507
  Receipt Date: 20090507
  Transmission Date: 20091009
  Serious: Yes (Hospitalization)
  Sender: FDA-Public Use
  Company Number: None

PATIENT
  Sex: Female
  Weight: 66.36 kg

DRUGS (9)
  1. ZOMETA [Suspect]
     Dosage: 4 MG
  2. QUADRAMET [Suspect]
     Dosage: 59.5 MCI
  3. VITAMIN D [Suspect]
     Dosage: 400 IU
  4. DECADRON [Concomitant]
  5. NAVELBINE [Concomitant]
  6. OS-CAL [Concomitant]
  7. HERCEPTIN [Concomitant]
  8. NEXIUM [Concomitant]
  9. OXYCODONE HCL [Concomitant]

REACTIONS (11)
  - BACTERIAL INFECTION [None]
  - BIOPSY PLEURA ABNORMAL [None]
  - CATHETER RELATED INFECTION [None]
  - CULTURE POSITIVE [None]
  - DISBACTERIOSIS [None]
  - EMPYEMA [None]
  - FEBRILE NEUTROPENIA [None]
  - FLAVOBACTERIUM INFECTION [None]
  - INFECTION [None]
  - PLEURAL EFFUSION [None]
  - WHITE BLOOD CELL COUNT DECREASED [None]
